FAERS Safety Report 9482563 (Version 1)
Quarter: 2013Q3

REPORT INFORMATION
  Report Type: Spontaneous
  Country: US (occurrence: US)
  Receive Date: 20130828
  Receipt Date: 20130828
  Transmission Date: 20140515
  Serious: No
  Sender: FDA-Public Use
  Company Number: US-SANOFI-AVENTIS-2013SA062064

PATIENT
  Sex: Male
  Weight: 97.5 kg

DRUGS (11)
  1. ELIGARD [Suspect]
     Indication: PROSTATE CANCER
     Dosage: EVERY 4 MONTHS, SUBCUTANEOUS
     Route: 065
  2. BUMETANIDE [Concomitant]
  3. COREG [Concomitant]
  4. DIGOXIN [Concomitant]
  5. VASOTEC [Concomitant]
  6. GLIPIZIDE [Concomitant]
  7. GLUCOPHAGE [Concomitant]
  8. K-DUR [Concomitant]
  9. ZOCOR [Concomitant]
  10. COUMADIN [Concomitant]
  11. XALATAN [Concomitant]
     Dosage: EACH EYE QHS

REACTIONS (2)
  - Injection site mass [Recovered/Resolved]
  - Injection site pain [Not Recovered/Not Resolved]
